FAERS Safety Report 24164483 (Version 1)
Quarter: 2024Q3

REPORT INFORMATION
  Report Type: Spontaneous
  Country: NL (occurrence: NL)
  Receive Date: 20240801
  Receipt Date: 20240801
  Transmission Date: 20241017
  Serious: Yes (Other)
  Sender: SANDOZ
  Company Number: NL-AMGEN-NLDSP2024145982

PATIENT
  Sex: Female

DRUGS (1)
  1. ADALIMUMAB [Suspect]
     Active Substance: ADALIMUMAB
     Indication: Rheumatoid arthritis
     Dosage: UNK
     Route: 065

REACTIONS (6)
  - Type 1 diabetes mellitus [Unknown]
  - Gestational diabetes [Unknown]
  - Pre-eclampsia [Unknown]
  - Gestational hypertension [Unknown]
  - Premature delivery [Unknown]
  - Maternal exposure during pregnancy [Unknown]
